FAERS Safety Report 4284166-2 (Version None)
Quarter: 2004Q1

REPORT INFORMATION
  Report Type: 
  Country: None (occurrence: None)
  Receive Date: 20040203
  Receipt Date: 20040127
  Transmission Date: 20041129
  Serious: Yes (Hospitalization)
  Sender: FDA-Public Use
  Company Number: FR-GLAXOSMITHKLINE-B0321106A

PATIENT
  Age: 4 Month
  Sex: Male

DRUGS (2)
  1. AUGMENTIN [Suspect]
     Route: 048
  2. BACTRIM [Suspect]
     Route: 048

REACTIONS (2)
  - GRANULOCYTOPENIA [None]
  - NEUTROPENIA [None]
